FAERS Safety Report 16652321 (Version 1)
Quarter: 2019Q3

REPORT INFORMATION
  Report Type: Spontaneous
  Country: CA (occurrence: CA)
  Receive Date: 20190731
  Receipt Date: 20190731
  Transmission Date: 20191004
  Serious: Yes (Death, Other)
  Sender: FDA-Public Use
  Company Number: CA-JNJFOC-20190732256

PATIENT
  Age: 87 Year
  Sex: Female

DRUGS (6)
  1. LEVOTHYROXINE. [Concomitant]
     Active Substance: LEVOTHYROXINE
  2. ATORVASTATIN [Concomitant]
     Active Substance: ATORVASTATIN
  3. CALCIUM                            /00751528/ [Concomitant]
  4. ATENOLOL. [Concomitant]
     Active Substance: ATENOLOL
  5. RIVAROXABAN [Suspect]
     Active Substance: RIVAROXABAN
     Indication: ATRIAL FIBRILLATION
     Dosage: 15 MG, QD
     Route: 048
  6. CANDESARTAN. [Concomitant]
     Active Substance: CANDESARTAN

REACTIONS (4)
  - Pain [Fatal]
  - Extradural haematoma [Fatal]
  - Dysphagia [Fatal]
  - Muscular weakness [Fatal]
